FAERS Safety Report 15494160 (Version 1)
Quarter: 2018Q4

REPORT INFORMATION
  Report Type: Spontaneous
  Country: US (occurrence: US)
  Receive Date: 20181005
  Receipt Date: 20181005
  Transmission Date: 20190205
  Serious: No
  Sender: FDA-Public Use
  Company Number: None

PATIENT
  Age: 48 Year
  Sex: Female
  Weight: 90.45 kg

DRUGS (6)
  1. MULTIVITAMIN [Concomitant]
     Active Substance: VITAMINS
  2. AZATHIOPRINE. [Concomitant]
     Active Substance: AZATHIOPRINE
  3. EFFEXOR XR [Concomitant]
     Active Substance: VENLAFAXINE HYDROCHLORIDE
  4. ELDERBERRY [Concomitant]
     Active Substance: HERBALS
  5. AIMOVIG [Suspect]
     Active Substance: ERENUMAB-AOOE
     Indication: PRODUCT USED FOR UNKNOWN INDICATION
     Dosage: ?          QUANTITY:1 INJECTION(S);?
     Route: 058
     Dates: start: 20181004
  6. CBD OIL [Concomitant]
     Active Substance: CANNABIDIOL\HERBALS

REACTIONS (2)
  - Myalgia [None]
  - Influenza like illness [None]

NARRATIVE: CASE EVENT DATE: 20181004
